FAERS Safety Report 25158756 (Version 4)
Quarter: 2025Q2

REPORT INFORMATION
  Report Type: Report from Study
  Country: US (occurrence: US)
  Receive Date: 20250404
  Receipt Date: 20250616
  Transmission Date: 20250716
  Serious: Yes (Other)
  Sender: SUNOVION
  Company Number: US-SUMITOMO PHARMA SWITZERLAND GMBH-2025SPA002908

PATIENT

DRUGS (1)
  1. ORGOVYX [Suspect]
     Active Substance: RELUGOLIX
     Indication: Prostate cancer
     Dosage: 120 MG, QD
     Route: 048
     Dates: start: 20250312

REACTIONS (10)
  - Metastasis [Unknown]
  - Restless legs syndrome [Unknown]
  - Cold sweat [Not Recovered/Not Resolved]
  - Sleep disorder [Unknown]
  - Chest discomfort [Unknown]
  - Gait disturbance [Unknown]
  - Myalgia [Unknown]
  - Hot flush [Unknown]
  - Hyperhidrosis [Unknown]
  - Incorrect dose administered [Unknown]
